FAERS Safety Report 24403004 (Version 1)
Quarter: 2024Q4

REPORT INFORMATION
  Report Type: Report from Study
  Country: IT (occurrence: IT)
  Receive Date: 20241007
  Receipt Date: 20241007
  Transmission Date: 20250115
  Serious: No
  Sender: ROCHE
  Company Number: IT-ROCHE-2924936

PATIENT
  Age: 56 Year
  Sex: Male

DRUGS (2)
  1. OBINUTUZUMAB [Suspect]
     Active Substance: OBINUTUZUMAB
     Indication: Follicular lymphoma
     Dosage: OBINUTUZUMAB WAS ADMINISTERED AT A DOSE OF 1000 MG, EVERY 21 DAYS (+/-2 DAYS), DURING THE INDUCTION
     Route: 042
     Dates: start: 20191016
  2. POLYETHYLENE GLYCOLS [Concomitant]
     Active Substance: POLYETHYLENE GLYCOLS
     Indication: Prophylaxis
     Dates: start: 20191002

REACTIONS (4)
  - Off label use [Unknown]
  - Neck pain [Recovered/Resolved]
  - Dyspepsia [Recovered/Resolved]
  - Constipation [Not Recovered/Not Resolved]

NARRATIVE: CASE EVENT DATE: 20200123
